FAERS Safety Report 4856023-1 (Version None)
Quarter: 2005Q4

REPORT INFORMATION
  Report Type: 
  Country: None (occurrence: None)
  Receive Date: 20051216
  Receipt Date: 20051205
  Transmission Date: 20060501
  Serious: Yes (Other)
  Sender: FDA-Public Use
  Company Number: BE-JNJFOC-20051105504

PATIENT
  Sex: Female
  Weight: 104 kg

DRUGS (2)
  1. TOPAMAX [Suspect]
     Indication: FACIAL NEURALGIA
     Route: 048
  2. FLIXONASE [Concomitant]
     Route: 065

REACTIONS (3)
  - BRADYCARDIA [None]
  - FATIGUE [None]
  - VENTRICULAR EXTRASYSTOLES [None]
